FAERS Safety Report 26173004 (Version 1)
Quarter: 2025Q4

REPORT INFORMATION
  Report Type: Spontaneous
  Country: US (occurrence: US)
  Receive Date: 20251218
  Receipt Date: 20251218
  Transmission Date: 20260118
  Serious: No
  Sender: ABBVIE
  Company Number: US-ABBVIE-6592666

PATIENT
  Sex: Male
  Weight: 82 kg

DRUGS (1)
  1. HUMIRA [Suspect]
     Active Substance: ADALIMUMAB
     Indication: Crohn^s disease
     Dosage: LAST ADMIN DATE: 2022 OR 2023
     Route: 058
     Dates: start: 2017, end: 2022

REACTIONS (3)
  - Weight increased [Unknown]
  - Therapeutic product effect decreased [Not Recovered/Not Resolved]
  - Drug specific antibody [Unknown]
